FAERS Safety Report 19165801 (Version 1)
Quarter: 2021Q2

REPORT INFORMATION
  Report Type: Spontaneous
  Country: CN (occurrence: CN)
  Receive Date: 20210422
  Receipt Date: 20210422
  Transmission Date: 20210717
  Serious: Yes (Other)
  Sender: FDA-Public Use
  Company Number: CN-ROCHE-2814035

PATIENT
  Age: 69 Year
  Sex: Male

DRUGS (5)
  1. EPIRUBICIN [Concomitant]
     Active Substance: EPIRUBICIN
     Indication: EPSTEIN-BARR VIRUS ASSOCIATED LYMPHOMA
     Dosage: ON 26/DEC/2020, 22/JAN/2021, 25/FEB/2021, AND 26/MAR/2021
     Route: 065
  2. DEXAMETHASONE. [Concomitant]
     Active Substance: DEXAMETHASONE
     Indication: EPSTEIN-BARR VIRUS ASSOCIATED LYMPHOMA
     Dosage: ON 26/DEC/2020, 22/JAN/2021, 25/FEB/2021, AND 26/MAR/2021
     Route: 065
  3. RITUXIMAB. [Suspect]
     Active Substance: RITUXIMAB
     Indication: EPSTEIN-BARR VIRUS ASSOCIATED LYMPHOMA
     Dosage: ON 26/DEC/2020, 22/JAN/2021, 25/FEB/2021, AND 26/MAR/2021
     Route: 065
  4. VINDESINE [Concomitant]
     Active Substance: VINDESINE
     Indication: EPSTEIN-BARR VIRUS ASSOCIATED LYMPHOMA
     Dosage: ON 26/DEC/2020, 22/JAN/2021, 25/FEB/2021, AND 26/MAR/2021
     Route: 065
  5. CYCLOPHOSPHAMIDE. [Concomitant]
     Active Substance: CYCLOPHOSPHAMIDE
     Indication: EPSTEIN-BARR VIRUS ASSOCIATED LYMPHOMA
     Dosage: ON 26/DEC/2020, 22/JAN/2021, 25/FEB/2021, AND 26/MAR/2021
     Route: 065

REACTIONS (2)
  - Pneumonia [Unknown]
  - Myelosuppression [Unknown]
